FAERS Safety Report 20363398 (Version 1)
Quarter: 2022Q1

REPORT INFORMATION
  Report Type: Report from Study
  Country: US (occurrence: US)
  Receive Date: 20220121
  Receipt Date: 20220121
  Transmission Date: 20220424
  Serious: Yes (Hospitalization)
  Sender: FDA-Public Use
  Company Number: US-UCBSA-2021026884

PATIENT
  Sex: Male

DRUGS (1)
  1. LACOSAMIDE [Suspect]
     Active Substance: LACOSAMIDE
     Indication: Seizure
     Dosage: 100 MILLIGRAM, 2X/DAY (BID)
     Dates: start: 202104

REACTIONS (14)
  - Anxiety [Not Recovered/Not Resolved]
  - Decreased appetite [Not Recovered/Not Resolved]
  - Balance disorder [Not Recovered/Not Resolved]
  - Fatigue [Not Recovered/Not Resolved]
  - Pruritus [Not Recovered/Not Resolved]
  - Sleep disorder [Not Recovered/Not Resolved]
  - Amnesia [Not Recovered/Not Resolved]
  - Asthenia [Not Recovered/Not Resolved]
  - Dysgraphia [Not Recovered/Not Resolved]
  - Muscular weakness [Not Recovered/Not Resolved]
  - Depression [Not Recovered/Not Resolved]
  - Product dose omission issue [Unknown]
  - Product availability issue [Unknown]
  - Therapy interrupted [Unknown]

NARRATIVE: CASE EVENT DATE: 20210101
